FAERS Safety Report 25930615 (Version 1)
Quarter: 2025Q4

REPORT INFORMATION
  Report Type: Spontaneous
  Country: US (occurrence: US)
  Receive Date: 20251016
  Receipt Date: 20251016
  Transmission Date: 20260119
  Serious: No
  Sender: ELI LILLY AND COMPANY
  Company Number: US-ELI_LILLY_AND_COMPANY-US202510011469

PATIENT
  Age: 66 Year
  Sex: Male

DRUGS (4)
  1. HUMALOG [Suspect]
     Active Substance: INSULIN LISPRO
     Indication: Type 1 diabetes mellitus
     Dosage: 48 U, DAILY
     Route: 058
     Dates: start: 2021
  2. HUMALOG [Suspect]
     Active Substance: INSULIN LISPRO
     Indication: Type 1 diabetes mellitus
     Dosage: 48 U, DAILY
     Route: 058
     Dates: start: 2021
  3. HUMALOG [Suspect]
     Active Substance: INSULIN LISPRO
     Dosage: 48 U, DAILY
     Route: 058
  4. INSULIN NOS [Concomitant]
     Active Substance: INSULIN NOS
     Indication: Product used for unknown indication
     Dosage: 42 U

REACTIONS (2)
  - Visual impairment [Not Recovered/Not Resolved]
  - Cataract [Unknown]

NARRATIVE: CASE EVENT DATE: 20240101
